FAERS Safety Report 10948757 (Version 1)
Quarter: 2015Q1

REPORT INFORMATION
  Report Type: Spontaneous
  Country: US (occurrence: US)
  Receive Date: 20150324
  Receipt Date: 20150324
  Transmission Date: 20150721
  Serious: Yes (Life-Threatening, Hospitalization)
  Sender: FDA-Public Use
  Company Number: 2015SP000903

PATIENT
  Age: 46 Year
  Sex: Female

DRUGS (2)
  1. GEODON [Concomitant]
     Active Substance: ZIPRASIDONE HYDROCHLORIDE\ZIPRASIDONE MESYLATE
  2. LATUDA [Suspect]
     Active Substance: LURASIDONE HYDROCHLORIDE
     Indication: BIPOLAR I DISORDER
     Route: 048

REACTIONS (5)
  - Encephalopathy [Not Recovered/Not Resolved]
  - Mania [Unknown]
  - Pneumonia aspiration [Not Recovered/Not Resolved]
  - Respiratory distress [Not Recovered/Not Resolved]
  - Drug screen positive [Unknown]

NARRATIVE: CASE EVENT DATE: 201503
